FAERS Safety Report 21725504 (Version 1)
Quarter: 2022Q4

REPORT INFORMATION
  Report Type: Report from Study
  Country: PR (occurrence: PR)
  Receive Date: 20221214
  Receipt Date: 20221214
  Transmission Date: 20230113
  Serious: No
  Sender: FDA-Public Use
  Company Number: PR-ABBVIE-4189501

PATIENT
  Sex: Female
  Weight: 99.79 kg

DRUGS (5)
  1. LEVOTHYROXINE [Suspect]
     Active Substance: LEVOTHYROXINE
     Indication: Thyroid disorder
     Route: 065
     Dates: start: 202204
  2. RINVOQ [Concomitant]
     Active Substance: UPADACITINIB
     Indication: Product used for unknown indication
     Dosage: 15 MILLIGRAM
     Route: 048
     Dates: start: 20210607
  3. Pfizer BioNTech vaccine [Concomitant]
     Indication: COVID-19
     Dosage: 1ST DOSE
     Route: 030
     Dates: start: 20210225, end: 20210225
  4. Pfizer BioNTech vaccine [Concomitant]
     Indication: COVID-19
     Dosage: 3RD DOSE
     Route: 030
     Dates: start: 20210902, end: 20210902
  5. Pfizer BioNTech vaccine [Concomitant]
     Indication: COVID-19
     Dosage: 2ND DOSE
     Route: 030
     Dates: start: 20210315, end: 20210315

REACTIONS (3)
  - Headache [Recovered/Resolved]
  - Malaise [Unknown]
  - Dizziness [Recovered/Resolved]

NARRATIVE: CASE EVENT DATE: 20220401
